FAERS Safety Report 9982064 (Version 1)
Quarter: 2014Q1

REPORT INFORMATION
  Report Type: Spontaneous
  Country: US (occurrence: None)
  Receive Date: 20140127
  Receipt Date: 20140127
  Transmission Date: 20141002
  Serious: Yes (Other)
  Sender: FDA-Public Use
  Company Number: 1228889

PATIENT
  Sex: 0

DRUGS (2)
  1. RITUXAN (RITUXIMAB) (INFUSION, SOLUTION) [Suspect]
     Indication: PRODUCT USED FOR UNKNOWN INDICATION
  2. BENDAMUSTINE (BENDAMUSTINE) (BENDAMUSTINE) [Concomitant]

REACTIONS (7)
  - Nausea [None]
  - Hyperhidrosis [None]
  - Asthenia [None]
  - Hypotension [None]
  - Feeling abnormal [None]
  - Flushing [None]
  - Product quality issue [None]
